FAERS Safety Report 6409313-5 (Version None)
Quarter: 2009Q4

REPORT INFORMATION
  Report Type: 
  Country: None (occurrence: None)
  Receive Date: 20091021
  Receipt Date: 20091013
  Transmission Date: 20100525
  Serious: Yes (Hospitalization)
  Sender: FDA-Public Use
  Company Number: ES-BAXTER-2009BH016189

PATIENT
  Age: 41 Year
  Sex: Female

DRUGS (4)
  1. ENDOXAN BAXTER [Suspect]
     Indication: BREAST CANCER
     Route: 065
     Dates: start: 20090819, end: 20090903
  2. ENDOXAN BAXTER [Suspect]
     Route: 065
     Dates: start: 20090923
  3. EPIRUBICIN HYDROCHLORIDE [Suspect]
     Indication: BREAST CANCER
     Route: 042
     Dates: start: 20090819, end: 20090903
  4. EPIRUBICIN HYDROCHLORIDE [Suspect]
     Route: 042
     Dates: start: 20090923

REACTIONS (3)
  - CELLULITIS [None]
  - FEBRILE NEUTROPENIA [None]
  - HYPERTENSION [None]
